FAERS Safety Report 23318780 (Version 1)
Quarter: 2023Q4

REPORT INFORMATION
  Report Type: Spontaneous
  Country: JP (occurrence: JP)
  Receive Date: 20231220
  Receipt Date: 20231220
  Transmission Date: 20240110
  Serious: Yes (Life-Threatening, Other)
  Sender: FDA-Public Use
  Company Number: JP-TAKEDA-2023TJP017080

PATIENT
  Age: 63 Year
  Sex: Female

DRUGS (1)
  1. AGRYLIN [Suspect]
     Active Substance: ANAGRELIDE HYDROCHLORIDE
     Indication: Essential thrombocythaemia
     Dosage: 2 MILLIGRAM
     Route: 048

REACTIONS (1)
  - Subarachnoid haemorrhage [Unknown]
